FAERS Safety Report 25261706 (Version 4)
Quarter: 2025Q3

REPORT INFORMATION
  Report Type: Spontaneous
  Country: JP (occurrence: JP)
  Receive Date: 20250502
  Receipt Date: 20250717
  Transmission Date: 20251020
  Serious: Yes (Hospitalization, Other)
  Sender: TAKEDA
  Company Number: JP-TAKEDA-2025TJP004246

PATIENT
  Age: 8 Decade
  Sex: Male
  Weight: 72 kg

DRUGS (2)
  1. FEIBA NF [Suspect]
     Active Substance: ANTI-INHIBITOR COAGULANT COMPLEX
     Indication: Haemostasis
     Dosage: 6000 DOSAGE FORM, BID
     Dates: start: 20250423, end: 20250425
  2. FEIBA NF [Suspect]
     Active Substance: ANTI-INHIBITOR COAGULANT COMPLEX
     Dosage: 6000 DOSAGE FORM, QD
     Dates: start: 20250425, end: 20250425

REACTIONS (4)
  - Haematochezia [Recovered/Resolved]
  - Puncture site haemorrhage [Recovered/Resolved]
  - Haemorrhage [Recovered/Resolved]
  - Drug ineffective [Unknown]

NARRATIVE: CASE EVENT DATE: 20250423
